FAERS Safety Report 4407256-X (Version None)
Quarter: 2004Q3

REPORT INFORMATION
  Report Type: 
  Country: None (occurrence: None)
  Receive Date: 20040723
  Receipt Date: 20040723
  Transmission Date: 20050211
  Serious: No
  Sender: FDA-Public Use
  Company Number: None

PATIENT
  Sex: Male
  Weight: 83.4619 kg

DRUGS (8)
  1. REMICADE [Suspect]
     Indication: RHEUMATOID ARTHRITIS
     Dosage: 400 MG Q8WKS INTRAVENOUS
     Route: 042
  2. PREDNISONE [Concomitant]
  3. VIOXX [Concomitant]
  4. PLAQUENIL [Concomitant]
  5. METHOTREXATE [Concomitant]
  6. FOLIC ACID [Concomitant]
  7. NEXIUM [Concomitant]
  8. ZESTRIL [Concomitant]

REACTIONS (1)
  - MALIGNANT MELANOMA [None]
